FAERS Safety Report 5759695-2 (Version None)
Quarter: 2008Q2

REPORT INFORMATION
  Report Type: 
  Country: None (occurrence: None)
  Receive Date: 20080605
  Receipt Date: 20080530
  Transmission Date: 20081010
  Serious: Yes (Hospitalization)
  Sender: FDA-Public Use
  Company Number: A0730327A

PATIENT
  Sex: Female

DRUGS (1)
  1. LAMICTAL [Suspect]
     Indication: BIPOLAR DISORDER
     Route: 048
     Dates: start: 20080101, end: 20080101

REACTIONS (5)
  - NAUSEA [None]
  - PETECHIAE [None]
  - PYREXIA [None]
  - TOXIC SHOCK SYNDROME [None]
  - VAGINAL INFECTION [None]
